FAERS Safety Report 26071578 (Version 1)
Quarter: 2025Q4

REPORT INFORMATION
  Report Type: Spontaneous
  Country: US (occurrence: None)
  Receive Date: 20251120
  Receipt Date: 20251120
  Transmission Date: 20260117
  Serious: Yes (Death)
  Sender: FDA-CTU
  Company Number: None

PATIENT
  Age: 65 Year
  Sex: Male

DRUGS (1)
  1. MAVYRET [Suspect]
     Active Substance: GLECAPREVIR\PIBRENTASVIR
     Indication: Hepatitis G
     Dosage: FREQUENCY : DAILY;?
     Route: 048
     Dates: start: 20251014, end: 20251112

REACTIONS (1)
  - Death [None]

NARRATIVE: CASE EVENT DATE: 20251111
